FAERS Safety Report 17744691 (Version 4)
Quarter: 2020Q3

REPORT INFORMATION
  Report Type: Spontaneous
  Country: DE (occurrence: DE)
  Receive Date: 20200504
  Receipt Date: 20200904
  Transmission Date: 20201102
  Serious: Yes (Other)
  Sender: FDA-Public Use
  Company Number: DE-009507513-2004DEU006048

PATIENT
  Age: 22 Year
  Sex: Female
  Weight: 58 kg

DRUGS (3)
  1. REMERGIL SOLTAB [Suspect]
     Active Substance: MIRTAZAPINE
     Indication: MAJOR DEPRESSION
     Dosage: 30 MILLIGRAM, QD
     Route: 048
     Dates: start: 20130514, end: 20130613
  2. DIPIPERON [Suspect]
     Active Substance: PIPAMPERONE
     Indication: PSYCHOTIC DISORDER
     Dosage: 20 MILLIGRAM, QD
     Route: 048
     Dates: start: 20130514, end: 20130528
  3. ACETYLCYSTEINE. [Concomitant]
     Active Substance: ACETYLCYSTEINE
     Dosage: UNK

REACTIONS (1)
  - Drug-induced liver injury [Recovered/Resolved]
